FAERS Safety Report 6291552-8 (Version None)
Quarter: 2009Q3

REPORT INFORMATION
  Report Type: 
  Country: None (occurrence: None)
  Receive Date: 20090730
  Receipt Date: 20090721
  Transmission Date: 20100115
  Serious: Yes (Other)
  Sender: FDA-Public Use
  Company Number: PHEH2009US02809

PATIENT
  Sex: Male
  Weight: 28.7 kg

DRUGS (3)
  1. TRILEPTAL [Suspect]
     Indication: CONVULSION
     Dosage: 5 ML, BID
     Route: 048
     Dates: start: 20081119
  2. TRILEPTAL [Suspect]
     Dosage: 300/5ML BID
     Dates: start: 20081201, end: 20090301
  3. TEGRETOL [Suspect]
     Dosage: 100 MG, UNK
     Dates: start: 20080801

REACTIONS (13)
  - BRADYPHRENIA [None]
  - CHOKING [None]
  - CONFUSIONAL STATE [None]
  - CONVULSION [None]
  - DYSARTHRIA [None]
  - DYSPHAGIA [None]
  - EXCESSIVE EYE BLINKING [None]
  - INITIAL INSOMNIA [None]
  - JAW DISORDER [None]
  - LETHARGY [None]
  - MUSCLE TWITCHING [None]
  - PSYCHOMOTOR HYPERACTIVITY [None]
  - SALIVARY HYPERSECRETION [None]
